FAERS Safety Report 9751739 (Version 1)
Quarter: 2013Q4

REPORT INFORMATION
  Report Type: Spontaneous
  Country: US (occurrence: US)
  Receive Date: 20131213
  Receipt Date: 20131213
  Transmission Date: 20140711
  Serious: Yes (Hospitalization)
  Sender: FDA-Public Use
  Company Number: US-BIOGENIDEC-2013BI119119

PATIENT
  Sex: Female

DRUGS (1)
  1. TYSABRI [Suspect]
     Indication: MULTIPLE SCLEROSIS
     Route: 042
     Dates: start: 20130419, end: 20130913

REACTIONS (3)
  - Eating disorder [Not Recovered/Not Resolved]
  - Aphagia [Not Recovered/Not Resolved]
  - Gait disturbance [Not Recovered/Not Resolved]
